FAERS Safety Report 4310175-0 (Version None)
Quarter: 2004Q1

REPORT INFORMATION
  Report Type: 
  Country: None (occurrence: None)
  Receive Date: 20040302
  Receipt Date: 20040302
  Transmission Date: 20041129
  Serious: Yes (Hospitalization)
  Sender: FDA-Public Use
  Company Number: None

PATIENT
  Age: 78 Year
  Sex: Male
  Weight: 81.6475 kg

DRUGS (8)
  1. GATIFLOXACIN [Suspect]
     Indication: PNEUMONIA
     Dosage: 400 MG PO QD
     Route: 048
     Dates: start: 20040121, end: 20040125
  2. CLONIDINE [Concomitant]
  3. FOSINOPRIL SODIUM [Concomitant]
  4. HYDROCHLOROTHIAZIDE [Concomitant]
  5. RABEPRAZOLE SODIUM [Concomitant]
  6. ROSIGLITAZONE MALEATE [Concomitant]
  7. SIMVASTATIN [Concomitant]
  8. TRAMADOL [Concomitant]

REACTIONS (4)
  - DYSPNOEA [None]
  - HYPERGLYCAEMIA [None]
  - NAUSEA [None]
  - VISION BLURRED [None]
